FAERS Safety Report 5037281-X (Version None)
Quarter: 2006Q2

REPORT INFORMATION
  Report Type: 
  Country: None (occurrence: None)
  Receive Date: 20060622
  Receipt Date: 20060608
  Transmission Date: 20061013
  Serious: Yes (Death)
  Sender: FDA-Public Use
  Company Number: 8017220

PATIENT
  Age: 36 Year
  Sex: Female
  Weight: 45.5 kg

DRUGS (2)
  1. KEPPRA [Suspect]
     Indication: CONVULSION
     Dosage: 375 MG 2/D PO
     Route: 048
     Dates: start: 20050617, end: 20060518
  2. TRILEPTAL [Concomitant]

REACTIONS (2)
  - STATUS EPILEPTICUS [None]
  - SUDDEN DEATH [None]
